FAERS Safety Report 18890278 (Version 4)
Quarter: 2021Q2

REPORT INFORMATION
  Report Type: Spontaneous
  Country: US (occurrence: US)
  Receive Date: 20210214
  Receipt Date: 20210603
  Transmission Date: 20210717
  Serious: Yes (Hospitalization, Other)
  Sender: FDA-Public Use
  Company Number: US-SA-2021SA048538

PATIENT
  Age: 29 Year
  Sex: Female
  Weight: 89 kg

DRUGS (3)
  1. DUPIXENT [Suspect]
     Active Substance: DUPILUMAB
     Indication: DERMATITIS ATOPIC
     Dosage: 300 MG, QOW
     Route: 058
     Dates: end: 2020
  2. DUPIXENT [Suspect]
     Active Substance: DUPILUMAB
     Indication: IMMUNE DISORDER PROPHYLAXIS
  3. DUPIXENT [Suspect]
     Active Substance: DUPILUMAB
     Indication: ASTHMA

REACTIONS (4)
  - Product use in unapproved indication [Unknown]
  - Inflammation [Unknown]
  - Sepsis [Unknown]
  - Rebound effect [Unknown]

NARRATIVE: CASE EVENT DATE: 2020
